FAERS Safety Report 6027071-3 (Version None)
Quarter: 2009Q1

REPORT INFORMATION
  Report Type: 
  Country: None (occurrence: None)
  Receive Date: 20090105
  Receipt Date: 20081223
  Transmission Date: 20090719
  Serious: Yes (Other)
  Sender: FDA-Public Use
  Company Number: US-ROCHE-600606

PATIENT
  Sex: Male

DRUGS (5)
  1. RIBAVIRIN [Suspect]
     Indication: HEPATITIS C
     Dosage: DIVIDED DOSES
     Route: 065
     Dates: start: 20080904
  2. PEG-INTERFERON A-2A (RO 25-8310) [Suspect]
     Indication: HEPATITIS C
     Dosage: FORM: PFS
     Route: 065
     Dates: start: 20080904
  3. FLOMAX [Concomitant]
  4. CYPROHEPTADINE HCL [Concomitant]
  5. NEXIUM [Concomitant]
     Indication: GASTRIC DISORDER

REACTIONS (4)
  - ASTHENIA [None]
  - CONVULSION [None]
  - FATIGUE [None]
  - PROSTATIC SPECIFIC ANTIGEN INCREASED [None]
